FAERS Safety Report 7572485-3 (Version None)
Quarter: 2011Q2

REPORT INFORMATION
  Report Type: 
  Country: None (occurrence: None)
  Receive Date: 20110627
  Receipt Date: 20110617
  Transmission Date: 20111010
  Serious: Yes (Hospitalization)
  Sender: FDA-Public Use
  Company Number: JP-BRISTOL-MYERS SQUIBB COMPANY-15853351

PATIENT
  Age: 41 Year
  Sex: Female
  Weight: 45 kg

DRUGS (2)
  1. ABILIFY [Suspect]
     Dosage: ABILIFY ORAL SOLUTION 0.1% PERCENT, DOSING IS: 12MG -BID
     Route: 048
  2. LENDORMIN [Suspect]
     Dosage: TABS; DOSING: IS 0.25MG /DAY
     Route: 048

REACTIONS (3)
  - LETHARGY [None]
  - INTENTIONAL OVERDOSE [None]
  - HALLUCINATION, AUDITORY [None]
